FAERS Safety Report 22654791 (Version 1)
Quarter: 2023Q2

REPORT INFORMATION
  Report Type: Spontaneous
  Country: US (occurrence: None)
  Receive Date: 20230628
  Receipt Date: 20230628
  Transmission Date: 20230722
  Serious: Yes (Death)
  Sender: FDA-Public Use
  Company Number: None

PATIENT
  Sex: Male

DRUGS (4)
  1. MEKINIST [Suspect]
     Active Substance: TRAMETINIB DIMETHYL SULFOXIDE
     Indication: Skin cancer
     Dosage: 2 MG ORAL??TAKE 1 TABLET (2 MG) BY MOUTH DAILY MUST BE TAKEN ON AN EMPTY STOMACH, AT LEAST 1 HOUR BE
     Route: 048
     Dates: start: 20221222
  2. ALPRAZOLAM [Concomitant]
     Active Substance: ALPRAZOLAM
  3. METHADONE [Concomitant]
     Active Substance: METHADONE HYDROCHLORIDE
  4. ONDANSETRON [Concomitant]
     Active Substance: ONDANSETRON

REACTIONS (1)
  - Death [None]
